FAERS Safety Report 5822690-9 (Version None)
Quarter: 2008Q3

REPORT INFORMATION
  Report Type: 
  Country: None (occurrence: None)
  Receive Date: 20080721
  Receipt Date: 20080704
  Transmission Date: 20090109
  Serious: Yes (Hospitalization)
  Sender: FDA-Public Use
  Company Number: JPI -P - 004118

PATIENT
  Age: 36 Year
  Sex: Male

DRUGS (5)
  1. LUVOX [Suspect]
     Indication: DEPRESSION
     Dosage: 150 MG (50 MG,3 IN 1 D),ORAL
     Route: 048
     Dates: start: 20050619, end: 20050101
  2. CLOTIAZEPAM(CLOTIAZEPAM) [Suspect]
     Indication: DEPRESSION
     Dosage: 15 MG (5 MG,3 IN 1 D), ORAL
     Route: 048
  3. CHLORPROMAZINE HCL [Suspect]
     Indication: DEPRESSION
     Dosage: (12.5 MG,1 D), ORAL
     Route: 048
  4. TRIAZOLAM [Suspect]
     Indication: DEPRESSION
     Dosage: (0.25 MG,1 D), ORAL
     Route: 048
  5. ETIZOLAM (ETIZOLAM) [Suspect]
     Indication: DEPRESSION
     Dosage: (1 MG, AS REQUIRED), ORAL

REACTIONS (2)
  - COMPARTMENT SYNDROME [None]
  - RHABDOMYOLYSIS [None]
